FAERS Safety Report 20318689 (Version 1)
Quarter: 2022Q1

REPORT INFORMATION
  Report Type: Spontaneous
  Country: US (occurrence: None)
  Receive Date: 20220109
  Receipt Date: 20220109
  Transmission Date: 20220424
  Serious: No
  Sender: FDA-Public Use
  Company Number: None

PATIENT
  Age: 74 Year
  Sex: Male
  Weight: 83.25 kg

DRUGS (12)
  1. VALSARTAN [Suspect]
     Active Substance: VALSARTAN
     Indication: Hypertension
     Dosage: OTHER QUANTITY : 1 TABLET(S);?FREQUENCY : DAILY;?
     Route: 048
     Dates: start: 20220105, end: 20220108
  2. VALSARTAN [Suspect]
     Active Substance: VALSARTAN
     Indication: Aortic stenosis
  3. MULTI [Concomitant]
  4. GINKGO [Concomitant]
     Active Substance: GINKGO
  5. DIETARY SUPPLEMENT\RESVERATROL [Concomitant]
     Active Substance: DIETARY SUPPLEMENT\RESVERATROL
  6. flaxsed oil [Concomitant]
  7. COENZYME Q10 [Concomitant]
     Active Substance: DIETARY SUPPLEMENT\UBIDECARENONE
  8. Mk-7 Vitamin k-2 [Concomitant]
  9. ALPHA LIPOIC ACID [Concomitant]
     Active Substance: .ALPHA.-LIPOIC ACID
  10. Pumpkin seed oil [Concomitant]
  11. ACETYL-L-CARNITINE [Concomitant]
  12. Body Wise ag immune [Concomitant]

REACTIONS (14)
  - Proctalgia [None]
  - Dysuria [None]
  - Dizziness [None]
  - Asthenia [None]
  - Nausea [None]
  - Retching [None]
  - Chills [None]
  - Tremor [None]
  - Dry mouth [None]
  - Musculoskeletal stiffness [None]
  - Stiff leg syndrome [None]
  - Pain in extremity [None]
  - Dysphonia [None]
  - Blood pressure decreased [None]

NARRATIVE: CASE EVENT DATE: 20220108
